FAERS Safety Report 19482558 (Version 2)
Quarter: 2021Q3

REPORT INFORMATION
  Report Type: Report from Study
  Country: US (occurrence: US)
  Receive Date: 20210701
  Receipt Date: 20210728
  Transmission Date: 20211014
  Serious: No
  Sender: FDA-Public Use
  Company Number: US-SA-2021SA215177

PATIENT
  Age: 47 Year
  Sex: Female

DRUGS (4)
  1. TERIFLUNOMIDE. [Suspect]
     Active Substance: TERIFLUNOMIDE
     Indication: MULTIPLE SCLEROSIS
     Dosage: 14 MG, QD
     Route: 048
     Dates: start: 202104
  2. BACLOFEN. [Concomitant]
     Active Substance: BACLOFEN
     Indication: MUSCULAR WEAKNESS
     Dosage: 2 TO 3 TIMES A DAY
  3. LOESTRIN NOS [Concomitant]
     Active Substance: ETHINYL ESTRADIOL\NORETHINDRONE ACETATE
  4. VITAMIN D3 [Concomitant]
     Active Substance: CHOLECALCIFEROL

REACTIONS (4)
  - Frequent bowel movements [Unknown]
  - Gastrointestinal disorder [Unknown]
  - Fall [Not Recovered/Not Resolved]
  - Accident [Unknown]

NARRATIVE: CASE EVENT DATE: 2021
